FAERS Safety Report 24299933 (Version 2)
Quarter: 2024Q3

REPORT INFORMATION
  Report Type: Spontaneous
  Country: US (occurrence: US)
  Receive Date: 20240909
  Receipt Date: 20240927
  Transmission Date: 20241017
  Serious: Yes (Other)
  Sender: PFIZER
  Company Number: US-PFIZER INC-202400252186

PATIENT
  Age: 57 Year
  Sex: Female

DRUGS (3)
  1. IBRANCE [Suspect]
     Active Substance: PALBOCICLIB
     Dosage: 125 MG BY MOUTH DAILY FOR 21 DAYS
     Route: 048
     Dates: start: 20240820
  2. IBRANCE [Suspect]
     Active Substance: PALBOCICLIB
     Dosage: PO QD 21 DAYS ON WITH 7 DAYS OFF
     Route: 048
     Dates: start: 20240821
  3. IBRANCE [Suspect]
     Active Substance: PALBOCICLIB
     Dosage: PO QD 21 DAYS ON WITH 7 DAYS OFF
     Route: 048
     Dates: start: 20240920

REACTIONS (4)
  - Fatigue [Not Recovered/Not Resolved]
  - Flatulence [Not Recovered/Not Resolved]
  - Abdominal pain [Not Recovered/Not Resolved]
  - Abdominal pain upper [Not Recovered/Not Resolved]

NARRATIVE: CASE EVENT DATE: 20240827
